FAERS Safety Report 13168154 (Version 2)
Quarter: 2017Q1

REPORT INFORMATION
  Report Type: Spontaneous
  Country: UA (occurrence: UA)
  Receive Date: 20170131
  Receipt Date: 20170223
  Transmission Date: 20170428
  Serious: Yes (Other)
  Sender: FDA-Public Use
  Company Number: PHHY2017UA010900

PATIENT
  Sex: Male
  Weight: 96 kg

DRUGS (1)
  1. VOTRIENT [Suspect]
     Active Substance: PAZOPANIB HYDROCHLORIDE
     Indication: PRODUCT USED FOR UNKNOWN INDICATION
     Dosage: 400 MG, BID
     Route: 048

REACTIONS (3)
  - Diarrhoea [Recovered/Resolved]
  - Body temperature increased [Recovered/Resolved]
  - Vomiting [Recovered/Resolved]
